FAERS Safety Report 5860327-3 (Version None)
Quarter: 2008Q3

REPORT INFORMATION
  Report Type: 
  Country: None (occurrence: None)
  Receive Date: 20080827
  Receipt Date: 20070731
  Transmission Date: 20090109
  Serious: No
  Sender: FDA-Public Use
  Company Number: US-ABBOTT-07P-163-0376211-00

PATIENT
  Sex: Female
  Weight: 81.72 kg

DRUGS (3)
  1. COATED PDS [Suspect]
     Indication: BLOOD CHOLESTEROL INCREASED
     Dosage: ORANGE COATED
     Route: 048
     Dates: start: 20070724, end: 20070729
  2. COATED PDS [Suspect]
     Dosage: WHITE
     Route: 048
     Dates: start: 19990101, end: 20070724
  3. UNKNOWN CONCOMITANT MEDICATIONS [Concomitant]
     Indication: DRUG USE FOR UNKNOWN INDICATION

REACTIONS (3)
  - MIDDLE INSOMNIA [None]
  - PARAESTHESIA [None]
  - RASH MACULAR [None]
